FAERS Safety Report 5518241-9 (Version None)
Quarter: 2007Q4

REPORT INFORMATION
  Report Type: 
  Country: None (occurrence: None)
  Receive Date: 20071115
  Receipt Date: 20071107
  Transmission Date: 20080405
  Serious: Yes (Death, Life-Threatening)
  Sender: FDA-Public Use
  Company Number: A0668357A

PATIENT
  Age: 83 Year
  Sex: Female

DRUGS (9)
  1. AVANDIA [Suspect]
     Route: 048
  2. LOVASTATIN [Concomitant]
  3. METOPROLOL TARTRATE [Concomitant]
  4. LASIX [Concomitant]
  5. DIGOXIN [Concomitant]
  6. NORVASC [Concomitant]
  7. HUMALOG [Concomitant]
  8. PRAMLINTIDE [Concomitant]
  9. PRANDIN [Concomitant]
     Dates: end: 20050505

REACTIONS (1)
  - CARDIAC FAILURE CONGESTIVE [None]
